FAERS Safety Report 4753825-7 (Version None)
Quarter: 2005Q3

REPORT INFORMATION
  Report Type: 
  Country: None (occurrence: None)
  Receive Date: 20050826
  Receipt Date: 20050329
  Transmission Date: 20060218
  Serious: Yes (Hospitalization, Other)
  Sender: FDA-Public Use
  Company Number: US-GLAXOSMITHKLINE-A0555642A

PATIENT
  Sex: Female

DRUGS (4)
  1. PAXIL [Suspect]
     Indication: OBSESSIVE-COMPULSIVE DISORDER
     Dosage: 20MG AT NIGHT
     Route: 048
     Dates: start: 19990801, end: 19990901
  2. DEXEDRINE [Concomitant]
     Indication: ATTENTION DEFICIT/HYPERACTIVITY DISORDER
     Dosage: 10MG IN THE MORNING
     Route: 048
  3. DEPAKOTE [Concomitant]
     Indication: BIPOLAR DISORDER
     Route: 065
     Dates: start: 19990901
  4. CLONIDINE [Concomitant]
     Indication: SLEEP DISORDER
     Route: 065
     Dates: start: 19990901

REACTIONS (13)
  - ABNORMAL BEHAVIOUR [None]
  - AGGRESSION [None]
  - BIPOLAR DISORDER [None]
  - DISTURBANCE IN ATTENTION [None]
  - EDUCATIONAL PROBLEM [None]
  - HALLUCINATION, AUDITORY [None]
  - HALLUCINATION, VISUAL [None]
  - HOMICIDAL IDEATION [None]
  - INSOMNIA [None]
  - INTENTIONAL SELF-INJURY [None]
  - NIGHTMARE [None]
  - PSYCHOTIC DISORDER [None]
  - SUICIDAL IDEATION [None]
